FAERS Safety Report 16785044 (Version 1)
Quarter: 2019Q3

REPORT INFORMATION
  Report Type: Spontaneous
  Country: US (occurrence: US)
  Receive Date: 20190909
  Receipt Date: 20190909
  Transmission Date: 20191005
  Serious: No
  Sender: FDA-Public Use
  Company Number: US-ALLERGAN-1910982US

PATIENT
  Age: 35 Year
  Sex: Female

DRUGS (2)
  1. VANIQA [Suspect]
     Active Substance: EFLORNITHINE HYDROCHLORIDE
     Indication: HAIR GROWTH ABNORMAL
     Dosage: 1 APPLICATION BID 8 HOURS APART
     Route: 061
     Dates: start: 20190308, end: 20190309
  2. IBUPROFEN. [Concomitant]
     Active Substance: IBUPROFEN
     Indication: PRODUCT USED FOR UNKNOWN INDICATION
     Route: 048

REACTIONS (5)
  - Pain [Recovered/Resolved]
  - Application site rash [Recovered/Resolved]
  - Pain of skin [Recovered/Resolved]
  - Burning sensation [Recovered/Resolved]
  - Application site erythema [Recovered/Resolved]

NARRATIVE: CASE EVENT DATE: 20190308
